FAERS Safety Report 5264604-9 (Version None)
Quarter: 2007Q1

REPORT INFORMATION
  Report Type: 
  Country: None (occurrence: None)
  Receive Date: 20070314
  Receipt Date: 20070309
  Transmission Date: 20070707
  Serious: Yes (Death, Other)
  Sender: FDA-Public Use
  Company Number: DE-BRISTOL-MYERS SQUIBB COMPANY-13709456

PATIENT
  Age: 67 Year
  Sex: Female

DRUGS (2)
  1. TAXOL [Suspect]
     Indication: OVARIAN CANCER
     Dates: start: 20020501
  2. CARBOPLATIN [Suspect]
     Indication: OVARIAN CANCER
     Dates: start: 20020501

REACTIONS (4)
  - COUGH [None]
  - DIARRHOEA [None]
  - MALIGNANT NEOPLASM PROGRESSION [None]
  - SENSORY DISTURBANCE [None]
